FAERS Safety Report 24694339 (Version 1)
Quarter: 2024Q4

REPORT INFORMATION
  Report Type: Spontaneous
  Country: CN (occurrence: CN)
  Receive Date: 20241204
  Receipt Date: 20241204
  Transmission Date: 20250115
  Serious: Yes (Other)
  Sender: NOVARTIS
  Company Number: CN-002147023-NVSC2024CN229662

PATIENT
  Age: 61 Year
  Sex: Female

DRUGS (3)
  1. ENTRESTO [Suspect]
     Active Substance: SACUBITRIL\VALSARTAN
     Indication: Cardiac failure
     Dosage: 50.000 MG, BID
     Route: 045
     Dates: start: 20241103, end: 20241105
  2. ENTRESTO [Suspect]
     Active Substance: SACUBITRIL\VALSARTAN
     Indication: Hypertension
  3. SPIRONOLACTONE [Suspect]
     Active Substance: SPIRONOLACTONE
     Indication: Cardiac failure
     Dosage: 20.000 MG, QD
     Route: 045
     Dates: start: 20241103, end: 20241105

REACTIONS (7)
  - Chronic kidney disease [Unknown]
  - Hyperkalaemia [Recovering/Resolving]
  - Blood potassium increased [Recovering/Resolving]
  - Sodium retention [Recovering/Resolving]
  - Metabolic acidosis [Unknown]
  - Hypernatraemia [Unknown]
  - Off label use [Unknown]

NARRATIVE: CASE EVENT DATE: 20241103
